FAERS Safety Report 8086603-4 (Version None)
Quarter: 2012Q1

REPORT INFORMATION
  Report Type: 
  Country: None (occurrence: None)
  Receive Date: 20120128
  Receipt Date: 20110517
  Transmission Date: 20120608
  Serious: Yes (Hospitalization)
  Sender: FDA-Public Use
  Company Number: US-ABBOTT-11P-163-0726239-00

PATIENT
  Sex: Male
  Weight: 110.78 kg

DRUGS (5)
  1. HUMIRA [Suspect]
     Indication: ANKYLOSING SPONDYLITIS
     Dates: start: 20050101, end: 20100101
  2. CLOMID [Concomitant]
     Indication: INFERTILITY
  3. HUMIRA [Suspect]
     Indication: ANKYLOSING SPONDYLITIS
     Dates: start: 20100101, end: 20100101
  4. GENERIC LIPITOR [Concomitant]
     Indication: BLOOD CHOLESTEROL INCREASED
  5. VICODIN [Concomitant]
     Indication: PRODUCT USED FOR UNKNOWN INDICATION

REACTIONS (5)
  - PAIN [None]
  - FATIGUE [None]
  - BLOOD THYROID STIMULATING HORMONE INCREASED [None]
  - THYROID CANCER [None]
  - LYMPHADENOPATHY [None]
